FAERS Safety Report 17734593 (Version 1)
Quarter: 2020Q2

REPORT INFORMATION
  Report Type: Spontaneous
  Country: US (occurrence: US)
  Receive Date: 20200501
  Receipt Date: 20200501
  Transmission Date: 20200714
  Serious: Yes (Life-Threatening, Hospitalization, Disabling)
  Sender: FDA-Public Use
  Company Number: None

PATIENT
  Age: 58 Year
  Sex: Male
  Weight: 108 kg

DRUGS (5)
  1. OXYCODON [Concomitant]
     Active Substance: OXYCODONE
  2. AMBIEN [Concomitant]
     Active Substance: ZOLPIDEM TARTRATE
  3. GABAPENTIN. [Concomitant]
     Active Substance: GABAPENTIN
  4. ALLOPURINOL. [Concomitant]
     Active Substance: ALLOPURINOL
  5. ENBREL [Suspect]
     Active Substance: ETANERCEPT
     Indication: ARTHRITIS
     Dosage: ?          OTHER FREQUENCY:ONCE A WEEK;OTHER ROUTE:INJECTION INTO LEG?

REACTIONS (4)
  - Spinal cord infection [None]
  - Fall [None]
  - Loss of personal independence in daily activities [None]
  - Mobility decreased [None]

NARRATIVE: CASE EVENT DATE: 20190704
